FAERS Safety Report 10554225 (Version 2)
Quarter: 2016Q1

REPORT INFORMATION
  Report Type: Spontaneous
  Country: US (occurrence: US)
  Receive Date: 20141030
  Receipt Date: 20160301
  Transmission Date: 20160525
  Serious: No
  Sender: FDA-Public Use
  Company Number: US-009507513-1410USA011894

PATIENT
  Sex: Female

DRUGS (12)
  1. RIBASPHERE [Suspect]
     Active Substance: RIBAVIRIN
     Indication: CHRONIC HEPATITIS C
     Dosage: DAILY DOSE: 200-400MG TABLET
     Route: 065
     Dates: start: 20130813, end: 2013
  2. PROVENTIL [Concomitant]
     Active Substance: ALBUTEROL
     Indication: WHEEZING
     Dosage: 2 PUFFS AS NEEDED (1 IN 6 HR)
     Route: 055
  3. TRIGLIDE [Concomitant]
     Active Substance: FENOFIBRATE
     Dosage: ONE TABLET DAILY
     Route: 048
  4. ZYPREXA [Concomitant]
     Active Substance: OLANZAPINE
     Dosage: NIGHTLY (5 MG)
     Route: 048
  5. PEGASYS [Suspect]
     Active Substance: PEGINTERFERON ALFA-2A
     Indication: CHRONIC HEPATITIS C
     Dosage: UNK
     Route: 065
     Dates: start: 20130813, end: 20131021
  6. TRIGLIDE [Concomitant]
     Active Substance: FENOFIBRATE
     Dosage: 180 MG (1 IN 1 D)
     Route: 048
  7. GUAIFENESIN AC [Concomitant]
     Active Substance: CODEINE PHOSPHATE\GUAIFENESIN
     Indication: COUGH
     Dosage: 100/10MG PER 5 ML SYRUP, 1-2 TEASPOON EVERY 4-6 HOURS
  8. GLUCOPHAGE [Concomitant]
     Active Substance: METFORMIN HYDROCHLORIDE
     Dosage: 1000 MG (500 MG, 2 IN 1D)
     Route: 048
  9. ZOLOFT [Concomitant]
     Active Substance: SERTRALINE HYDROCHLORIDE
     Dosage: 1.5 TABLET OF 100 MG TABLET DAILY (150MG, 1 IN 1 D)
     Route: 048
  10. RIBASPHERE [Suspect]
     Active Substance: RIBAVIRIN
     Dosage: DAILY DOSE: 200-400MG TABLET
     Route: 065
     Dates: start: 2013, end: 20131021
  11. ZESTRIL [Concomitant]
     Active Substance: LISINOPRIL
     Dosage: 2 TABLETS ONCE DAILY (5 MG, 1 IN 1D)
     Route: 048
  12. VICTRELIS [Suspect]
     Active Substance: BOCEPREVIR
     Indication: HEPATITIS C
     Dosage: UNK
     Route: 065
     Dates: start: 20130813, end: 20131021

REACTIONS (2)
  - Drug ineffective [Unknown]
  - Anaemia [Unknown]

NARRATIVE: CASE EVENT DATE: 2013
